FAERS Safety Report 20968620 (Version 2)
Quarter: 2022Q4

REPORT INFORMATION
  Report Type: Report from Study
  Country: US (occurrence: US)
  Receive Date: 20220616
  Receipt Date: 20221223
  Transmission Date: 20230113
  Serious: Yes (Hospitalization, Other)
  Sender: FDA-Public Use
  Company Number: US-TAKEDA-US201820131

PATIENT
  Age: 63 Year
  Sex: Female
  Weight: 106 kg

DRUGS (66)
  1. PARATHYROID HORMONE [Suspect]
     Active Substance: PARATHYROID HORMONE
     Indication: Hypoparathyroidism
     Dosage: 50 MICROGRAM, QD
     Route: 065
     Dates: start: 20160721, end: 20170308
  2. PARATHYROID HORMONE [Suspect]
     Active Substance: PARATHYROID HORMONE
     Indication: Hypoparathyroidism
     Dosage: 50 MICROGRAM, QD
     Route: 065
     Dates: start: 20160721, end: 20170308
  3. PARATHYROID HORMONE [Suspect]
     Active Substance: PARATHYROID HORMONE
     Indication: Hypoparathyroidism
     Dosage: 50 MICROGRAM, QD
     Route: 065
     Dates: start: 20160721, end: 20170308
  4. PARATHYROID HORMONE [Suspect]
     Active Substance: PARATHYROID HORMONE
     Dosage: 75 MICROGRAM, QD
     Route: 065
     Dates: start: 20170309, end: 20171016
  5. PARATHYROID HORMONE [Suspect]
     Active Substance: PARATHYROID HORMONE
     Dosage: 75 MICROGRAM, QD
     Route: 065
     Dates: start: 20170309, end: 20171016
  6. PARATHYROID HORMONE [Suspect]
     Active Substance: PARATHYROID HORMONE
     Dosage: 75 MICROGRAM, QD
     Route: 065
     Dates: start: 20170309, end: 20171016
  7. PARATHYROID HORMONE [Suspect]
     Active Substance: PARATHYROID HORMONE
     Dosage: 100 MICROGRAM, QD
     Route: 065
     Dates: start: 20171017, end: 20180205
  8. PARATHYROID HORMONE [Suspect]
     Active Substance: PARATHYROID HORMONE
     Dosage: 100 MICROGRAM, QD
     Route: 065
     Dates: start: 20171017, end: 20180205
  9. PARATHYROID HORMONE [Suspect]
     Active Substance: PARATHYROID HORMONE
     Dosage: 100 MICROGRAM, QD
     Route: 065
     Dates: start: 20171017, end: 20180205
  10. PARATHYROID HORMONE [Suspect]
     Active Substance: PARATHYROID HORMONE
     Dosage: 75 MICROGRAM, QD
     Route: 065
     Dates: start: 20180206, end: 20190913
  11. PARATHYROID HORMONE [Suspect]
     Active Substance: PARATHYROID HORMONE
     Dosage: 75 MICROGRAM, QD
     Route: 065
     Dates: start: 20180206, end: 20190913
  12. PARATHYROID HORMONE [Suspect]
     Active Substance: PARATHYROID HORMONE
     Dosage: 75 MICROGRAM, QD
     Route: 065
     Dates: start: 20180206, end: 20190913
  13. PARATHYROID HORMONE [Suspect]
     Active Substance: PARATHYROID HORMONE
     Dosage: 75 MICROGRAM, QD
     Route: 065
     Dates: start: 20191110
  14. PARATHYROID HORMONE [Suspect]
     Active Substance: PARATHYROID HORMONE
     Dosage: 75 MICROGRAM, QD
     Route: 065
     Dates: start: 20191110
  15. PARATHYROID HORMONE [Suspect]
     Active Substance: PARATHYROID HORMONE
     Dosage: 75 MICROGRAM, QD
     Route: 065
     Dates: start: 20191110
  16. SIMETHICONE (DIMETHICONE) [Concomitant]
     Active Substance: DIMETHICONE
     Indication: Gastrooesophageal reflux disease
     Dosage: UNK
     Route: 065
     Dates: start: 20160406, end: 20160615
  17. DIPRIVAN [Concomitant]
     Active Substance: PROPOFOL
     Indication: Maintenance of anaesthesia
     Dosage: UNK
     Route: 042
     Dates: start: 20160406, end: 20160406
  18. NEO-SYNEPHRINE [Concomitant]
     Active Substance: PHENYLEPHRINE HYDROCHLORIDE
     Indication: Product used for unknown indication
     Dosage: UNK
     Route: 042
     Dates: start: 20160615, end: 20160615
  19. ROBINUL [Concomitant]
     Active Substance: GLYCOPYRROLATE
     Indication: Surgery
     Dosage: UNK
     Route: 042
     Dates: start: 20160615, end: 20160615
  20. XYLOCAINE [Concomitant]
     Active Substance: LIDOCAINE HYDROCHLORIDE
     Indication: Maintenance of anaesthesia
  21. CARAFATE [Concomitant]
     Active Substance: SUCRALFATE
     Indication: Antacid therapy
     Dosage: UNK
     Route: 065
     Dates: start: 20160615, end: 20161006
  22. SEROQUEL [Concomitant]
     Active Substance: QUETIAPINE FUMARATE
     Indication: Psychotic disorder
     Dosage: UNK
     Dates: start: 20140808, end: 20160111
  23. EFFEXOR [Concomitant]
     Active Substance: VENLAFAXINE HYDROCHLORIDE
     Indication: Depression
     Dosage: UNK
     Route: 048
     Dates: start: 20140808
  24. HYGROTON [Concomitant]
     Active Substance: CHLORTHALIDONE
     Indication: Hypertension
     Dosage: UNK
     Route: 065
     Dates: start: 20141106, end: 20160111
  25. ALLEGRA [Concomitant]
     Active Substance: FEXOFENADINE HYDROCHLORIDE
     Indication: Multiple allergies
     Dosage: UNK
     Route: 065
     Dates: start: 20150630, end: 20160111
  26. CARDURA [Concomitant]
     Active Substance: DOXAZOSIN MESYLATE
     Indication: Hypertension
     Dosage: UNK
     Route: 065
     Dates: start: 20150630, end: 20160111
  27. HYDRODIURIL [Concomitant]
     Active Substance: HYDROCHLOROTHIAZIDE
     Indication: Hypertension
     Dosage: UNK
     Route: 048
     Dates: start: 20150630
  28. METHOTREXATE SODIUM [Concomitant]
     Active Substance: METHOTREXATE SODIUM
     Indication: Arthritis
     Dosage: UNK
     Route: 065
     Dates: start: 20160111
  29. REMERON [Concomitant]
     Active Substance: MIRTAZAPINE
     Indication: Depression
     Dosage: UNK
     Route: 065
     Dates: start: 20160111
  30. ZANTAC [Concomitant]
     Active Substance: RANITIDINE HYDROCHLORIDE
     Indication: Antacid therapy
     Dosage: UNK
     Route: 065
     Dates: start: 20160308, end: 20161006
  31. DEXILANT [Concomitant]
     Active Substance: DEXLANSOPRAZOLE
     Indication: Dyspepsia
     Dosage: UNK
     Dates: start: 20160308, end: 20161006
  32. DEXILANT [Concomitant]
     Active Substance: DEXLANSOPRAZOLE
     Indication: Bulimia nervosa
  33. NASONEX [Concomitant]
     Active Substance: MOMETASONE FUROATE
     Indication: Multiple allergies
     Dosage: UNK
     Dates: start: 20160617
  34. VERAMYST [Concomitant]
     Active Substance: FLUTICASONE FUROATE
     Indication: Multiple allergies
     Dosage: UNK
     Route: 065
     Dates: start: 20131015, end: 20160706
  35. LEVOTHYROXINE [Concomitant]
     Active Substance: LEVOTHYROXINE
     Indication: Hypothyroidism
     Dosage: UNK
     Route: 048
     Dates: start: 20141202
  36. ABILIFY [Concomitant]
     Active Substance: ARIPIPRAZOLE
     Indication: Depression
     Dosage: UNK
     Route: 048
     Dates: start: 20100520
  37. AGGRENOX [Concomitant]
     Active Substance: ASPIRIN\DIPYRIDAMOLE
     Indication: Cerebrovascular accident
     Dosage: UNK
     Route: 048
     Dates: start: 20100520
  38. ALTACE [Concomitant]
     Active Substance: RAMIPRIL
     Indication: Hypertension
     Dosage: UNK
     Route: 065
     Dates: start: 20100520, end: 20160111
  39. HYALURONIC ACID [Concomitant]
     Active Substance: HYALURONIC ACID
     Indication: Osteoarthritis
     Dosage: UNK
     Dates: start: 20160815
  40. LIPITOR [Concomitant]
     Active Substance: ATORVASTATIN CALCIUM
     Indication: Hypertension
     Dosage: UNK
     Route: 048
     Dates: start: 20160805, end: 20170605
  41. E-Z [Concomitant]
     Indication: X-ray
     Dosage: UNK
     Dates: start: 20160628, end: 20160628
  42. E-Z [Concomitant]
     Indication: Gastrooesophageal reflux disease
  43. CYANOCOBALAMIN [Concomitant]
     Active Substance: CYANOCOBALAMIN
     Indication: Anaemia
     Dosage: UNK
     Dates: start: 20160927, end: 20160927
  44. AFLURIA [INFLUENZA VACCINE] [Concomitant]
     Indication: Immunisation
     Dosage: UNK
     Route: 065
     Dates: start: 20160927, end: 20160927
  45. TICAGRELOR [Concomitant]
     Active Substance: TICAGRELOR
     Indication: Cerebrovascular accident
     Dosage: UNK
     Route: 048
     Dates: start: 20180330
  46. LIDODERM [Concomitant]
     Active Substance: LIDOCAINE
     Indication: Back pain
     Dosage: UNK
     Route: 061
     Dates: start: 20120919
  47. IPRATROPIUM [Concomitant]
     Active Substance: IPRATROPIUM
     Indication: Cough
     Dosage: UNK
     Dates: start: 20180309
  48. ASPIRIN [Concomitant]
     Active Substance: ASPIRIN
     Indication: Back pain
     Dosage: UNK
     Route: 048
     Dates: start: 20180330
  49. DICLOFENAC [Concomitant]
     Active Substance: DICLOFENAC
     Indication: Back pain
     Dosage: UNK
     Route: 061
     Dates: start: 20170420
  50. EPOETIN ALFA [Concomitant]
     Active Substance: ERYTHROPOIETIN
     Indication: Anaemia
     Dosage: UNK
     Route: 058
     Dates: start: 20171117, end: 20171208
  51. IRON DEXTRAN [Concomitant]
     Active Substance: IRON DEXTRAN
     Indication: Anaemia
     Dosage: UNK
     Route: 042
     Dates: start: 20171204, end: 20171204
  52. BETAMETHASONE ACETATE\BETAMETHASONE SODIUM PHOSPHATE [Concomitant]
     Active Substance: BETAMETHASONE ACETATE\BETAMETHASONE SODIUM PHOSPHATE
     Indication: Arthralgia
     Dosage: UNK
     Dates: start: 20171031, end: 20171031
  53. CEPHALEXIN [Concomitant]
     Active Substance: CEPHALEXIN
     Indication: Bronchitis
     Dosage: UNK
     Route: 048
     Dates: start: 20170930, end: 20170930
  54. CEPHALEXIN [Concomitant]
     Active Substance: CEPHALEXIN
     Indication: Cystitis
  55. COSYNTROPIN [Concomitant]
     Active Substance: COSYNTROPIN
     Indication: Blood corticotrophin
     Dosage: UNK
     Route: 042
     Dates: start: 20171011, end: 20171011
  56. BENZONATATE [Concomitant]
     Active Substance: BENZONATATE
     Indication: Cough
     Dosage: UNK
     Route: 048
     Dates: start: 20171214, end: 20180118
  57. PREDNISONE [Concomitant]
     Active Substance: PREDNISONE
     Indication: Bronchitis
     Dosage: UNK
     Route: 048
     Dates: start: 20171218, end: 20171223
  58. LEVOFLOXACIN [Concomitant]
     Active Substance: LEVOFLOXACIN
     Indication: Bronchitis
     Dosage: UNK
     Route: 048
     Dates: start: 20171218, end: 20171225
  59. GUAIFENESIN + CODEINE [Concomitant]
     Indication: Cough
     Dosage: UNK
     Route: 048
     Dates: start: 20171218, end: 20180118
  60. ALBUTEROL [Concomitant]
     Active Substance: ALBUTEROL
     Indication: Bronchitis
     Dosage: UNK
     Route: 055
     Dates: start: 20171228, end: 20180118
  61. AMOXICILLIN AND CLAVULANATE POTASSIUM [Concomitant]
     Active Substance: AMOXICILLIN\CLAVULANATE POTASSIUM
     Indication: Bronchitis
     Dosage: UNK
     Route: 048
     Dates: start: 20180102, end: 20180109
  62. AZITHROMYCIN [Concomitant]
     Active Substance: AZITHROMYCIN
     Indication: Laryngitis
     Dosage: UNK
     Route: 048
     Dates: start: 20180530, end: 20180618
  63. DITROPAN [Concomitant]
     Active Substance: OXYBUTYNIN CHLORIDE
     Indication: Incontinence
     Dosage: UNK
     Route: 048
     Dates: start: 20191224
  64. CALTRATE [Concomitant]
     Active Substance: CALCIUM CARBONATE
     Indication: Treatment noncompliance
  65. CALCIUM GLUCONATE [Concomitant]
     Active Substance: CALCIUM GLUCONATE
     Indication: Hypocalcaemia
  66. CEFPODOXIME [Concomitant]
     Active Substance: CEFPODOXIME
     Indication: Urinary tract infection
     Dosage: UNK
     Route: 048
     Dates: start: 20190904, end: 20190913

REACTIONS (5)
  - Bronchitis [Recovered/Resolved with Sequelae]
  - Chest pain [Recovered/Resolved]
  - Syncope [Recovered/Resolved]
  - Circulatory collapse [Recovered/Resolved]
  - Cough [Recovering/Resolving]

NARRATIVE: CASE EVENT DATE: 20171110
